FAERS Safety Report 8888375 (Version 1)
Quarter: 2012Q4

REPORT INFORMATION
  Report Type: 
  Country: GB (occurrence: GB)
  Receive Date: 20121106
  Receipt Date: 20121106
  Transmission Date: 20130627
  Serious: Yes (Disabling, Other)
  Sender: FDA-Public Use
  Company Number: GB-B.I. PHARMACEUTICALS,INC./RIDGEFIELD-2012-BP-27205YA

PATIENT
  Age: 71 Year
  Sex: Male
  Weight: 92 kg

DRUGS (7)
  1. TAMSULOSINA [Suspect]
     Indication: RENAL TRANSPLANT
     Route: 065
     Dates: start: 20120411, end: 201207
  2. PROGRAF [Suspect]
     Indication: RENAL TRANSPLANT
     Route: 065
     Dates: start: 20120411
  3. AZITHROMYCIN (AZITHROMYCIN) [Concomitant]
     Dosage: 150 mg
     Route: 048
  4. CO-CODAMOL (CODEINE PHOSPHATE, PARACETAMOL) [Concomitant]
  5. LEVOTHYROXINE (LEVOTHYROXINE) [Concomitant]
     Dosage: 50 mcg
     Route: 048
  6. MYCOPHENOLATE SODIUM (MYCOPHENOLATE SODIUM) [Concomitant]
     Dosage: 2 g
     Route: 048
     Dates: end: 201206
  7. OMEPRAZOLE (OMEPRAZOLE) [Concomitant]
     Dosage: 40 mg
     Route: 048

REACTIONS (2)
  - Diplopia [Not Recovered/Not Resolved]
  - Visual impairment [Not Recovered/Not Resolved]
